FAERS Safety Report 8697240 (Version 3)
Quarter: 2012Q4

REPORT INFORMATION
  Report Type: 
  Country: JP (occurrence: JP)
  Receive Date: 20120801
  Receipt Date: 20121204
  Transmission Date: 20130627
  Serious: Yes (Other)
  Sender: FDA-Public Use
  Company Number: JP-PFIZER INC-2012182078

PATIENT
  Age: 44 Year
  Sex: Female

DRUGS (2)
  1. XALATAN [Suspect]
     Indication: NORMAL TENSION GLAUCOMA
     Dosage: 1 UNK, UNK
     Route: 047
     Dates: end: 20110126
  2. RYSMON TG [Suspect]
     Indication: NORMAL TENSION GLAUCOMA
     Dosage: 1x/day
     Route: 047
     Dates: end: 20110126

REACTIONS (3)
  - Corneal disorder [Recovered/Resolved]
  - Dry eye [Unknown]
  - Conjunctivitis allergic [Unknown]
